FAERS Safety Report 12751633 (Version 1)
Quarter: 2016Q3

REPORT INFORMATION
  Report Type: Spontaneous
  Country: US (occurrence: US)
  Receive Date: 20160916
  Receipt Date: 20160916
  Transmission Date: 20161109
  Serious: Yes (Disabling)
  Sender: FDA-Public Use
  Company Number: None

PATIENT
  Age: 76 Year
  Sex: Female
  Weight: 74.91 kg

DRUGS (13)
  1. L-LYSINE [Concomitant]
     Active Substance: LYSINE
  2. GABAPENTIN. [Suspect]
     Active Substance: GABAPENTIN
     Indication: HERPES ZOSTER
     Route: 048
     Dates: start: 20140810, end: 201410
  3. OMEPRAZOLE DR [Concomitant]
     Active Substance: OMEPRAZOLE
  4. BAYER ASPIRIN LOW DOSE [Concomitant]
  5. ONE A DAY PROACTIVE [Concomitant]
  6. LIVER BLEND [Concomitant]
  7. GABAPENTIN. [Suspect]
     Active Substance: GABAPENTIN
     Indication: PAIN
     Route: 048
     Dates: start: 20140810, end: 201410
  8. RAW VITAMIN C [Concomitant]
  9. ULTIMATE FLORA PROBIOTIC [Concomitant]
  10. COLOSTRUM NANO-STRENGTH [Concomitant]
  11. GLUCOSAMINE + MSM [Concomitant]
  12. VITAMIN B 1 [Concomitant]
  13. ULTRA B-12 [Concomitant]

REACTIONS (7)
  - Tremor [None]
  - Nausea [None]
  - Asthenia [None]
  - Oropharyngeal pain [None]
  - Memory impairment [None]
  - Dizziness [None]
  - Activities of daily living impaired [None]

NARRATIVE: CASE EVENT DATE: 20141010
